FAERS Safety Report 8383826-1 (Version None)
Quarter: 2012Q2

REPORT INFORMATION
  Report Type: 
  Country: None (occurrence: None)
  Receive Date: 20120524
  Receipt Date: 20120523
  Transmission Date: 20120825
  Serious: Yes (Death)
  Sender: FDA-Public Use
  Company Number: US-ROCHE-1051524

PATIENT
  Sex: Male
  Weight: 98.064 kg

DRUGS (3)
  1. INCIVEK [Suspect]
     Indication: HEPATITIS C
     Route: 048
     Dates: start: 20110729, end: 20120211
  2. PEGASYS [Suspect]
     Indication: HEPATITIS C
     Dates: start: 20110727, end: 20120211
  3. RIBAVIRIN [Suspect]
     Indication: HEPATITIS C
     Route: 048
     Dates: start: 20110729, end: 20120211

REACTIONS (1)
  - HEPATIC NEOPLASM MALIGNANT [None]
